FAERS Safety Report 22071370 (Version 4)
Quarter: 2023Q4

REPORT INFORMATION
  Report Type: Spontaneous
  Country: US (occurrence: US)
  Receive Date: 20230307
  Receipt Date: 20231106
  Transmission Date: 20240109
  Serious: No
  Sender: FDA-Public Use
  Company Number: US-PFIZER INC-PV202300039116

PATIENT
  Age: 82 Year
  Sex: Female
  Weight: 150 kg

DRUGS (1)
  1. XELJANZ [Suspect]
     Active Substance: TOFACITINIB CITRATE
     Dosage: 5 MG

REACTIONS (3)
  - Hypoacusis [Unknown]
  - Blood triglycerides abnormal [Unknown]
  - Blood pressure abnormal [Unknown]
